FAERS Safety Report 26048479 (Version 1)
Quarter: 2025Q4

REPORT INFORMATION
  Report Type: Report from Study
  Country: EU (occurrence: EU)
  Receive Date: 20251114
  Receipt Date: 20251114
  Transmission Date: 20260118
  Serious: Yes (Hospitalization)
  Sender: BAUSCH AND LOMB
  Company Number: EU-SA-2025SA320561

PATIENT
  Age: 64 Year
  Sex: Male
  Weight: 90 kg

DRUGS (30)
  1. DEXAMETHASONE [Suspect]
     Active Substance: DEXAMETHASONE
     Indication: Plasma cell myeloma refractory
     Dosage: 20 MG, QW
     Route: 065
     Dates: start: 20230309, end: 20230330
  2. DEXAMETHASONE [Suspect]
     Active Substance: DEXAMETHASONE
     Dosage: 20 MG, QW
     Route: 065
     Dates: start: 20230411, end: 20230426
  3. DEXAMETHASONE [Suspect]
     Active Substance: DEXAMETHASONE
     Dosage: 20 MG, BIW
     Dates: start: 20230509, end: 20230510
  4. DEXAMETHASONE [Suspect]
     Active Substance: DEXAMETHASONE
     Dosage: 20 MG, QW
     Route: 065
     Dates: start: 20230606, end: 20230622
  5. DEXAMETHASONE [Suspect]
     Active Substance: DEXAMETHASONE
     Dosage: 20 MG, QW
     Route: 065
     Dates: start: 20230704, end: 20230719
  6. DEXAMETHASONE [Suspect]
     Active Substance: DEXAMETHASONE
     Dosage: 20 MG, QW
     Route: 065
     Dates: start: 20230829, end: 20230913
  7. DEXAMETHASONE [Suspect]
     Active Substance: DEXAMETHASONE
     Dosage: DOSE RE-INTRODUCED
     Route: 065
  8. ISATUXIMAB [Suspect]
     Active Substance: ISATUXIMAB
     Indication: Plasma cell myeloma refractory
     Dosage: 950 MG, BIW
     Route: 065
     Dates: start: 20230309, end: 20230330
  9. ISATUXIMAB [Suspect]
     Active Substance: ISATUXIMAB
     Dosage: 950 MG, BIW
     Route: 065
     Dates: start: 20230411, end: 20230425
  10. ISATUXIMAB [Suspect]
     Active Substance: ISATUXIMAB
     Dosage: 950 MG, BIW
     Route: 065
     Dates: start: 20230509, end: 20230509
  11. ISATUXIMAB [Suspect]
     Active Substance: ISATUXIMAB
     Dosage: 950 MG, BIW
     Route: 065
     Dates: start: 20230606, end: 20230621
  12. ISATUXIMAB [Suspect]
     Active Substance: ISATUXIMAB
     Dosage: 950 MG, BIW
     Route: 065
     Dates: start: 20230704, end: 20230718
  13. ISATUXIMAB [Suspect]
     Active Substance: ISATUXIMAB
     Dosage: 940 MG, BIW
     Route: 065
     Dates: start: 20230829, end: 20230912
  14. ISATUXIMAB [Suspect]
     Active Substance: ISATUXIMAB
     Dosage: DOSE RE-INTRODUCED
     Route: 065
  15. CARFILZOMIB [Suspect]
     Active Substance: CARFILZOMIB
     Indication: Plasma cell myeloma refractory
     Dosage: 42 MG, QW
     Route: 065
     Dates: start: 20230309, end: 20230310
  16. CARFILZOMIB [Suspect]
     Active Substance: CARFILZOMIB
     Dosage: 117 MG, BIW
     Route: 065
     Dates: start: 20230316, end: 20230324
  17. CARFILZOMIB [Suspect]
     Active Substance: CARFILZOMIB
     Dosage: 117 MG, BIW
     Route: 065
     Dates: start: 20230411, end: 20230426
  18. CARFILZOMIB [Suspect]
     Active Substance: CARFILZOMIB
     Dosage: 112 MG, BIW
     Route: 065
     Dates: start: 20230509, end: 20230510
  19. CARFILZOMIB [Suspect]
     Active Substance: CARFILZOMIB
     Dosage: 117 MG, QW
     Route: 065
     Dates: start: 20230622, end: 20230622
  20. CARFILZOMIB [Suspect]
     Active Substance: CARFILZOMIB
     Dosage: 117 MG, QW
     Route: 065
     Dates: start: 20230704, end: 20230719
  21. CARFILZOMIB [Suspect]
     Active Substance: CARFILZOMIB
     Dosage: 116 MG, QW
     Route: 065
     Dates: start: 20230829, end: 20230912
  22. CARFILZOMIB [Suspect]
     Active Substance: CARFILZOMIB
     Dosage: DOSE RE-INTRODUCED
     Route: 065
  23. ACETAMINOPHEN [Concomitant]
     Active Substance: ACETAMINOPHEN
     Indication: Chemotherapy side effect prophylaxis
     Dosage: UNK UNK, BIW
     Dates: start: 20230309
  24. DIMETHINDENE [Concomitant]
     Active Substance: DIMETHINDENE
     Indication: Chemotherapy side effect prophylaxis
     Dosage: UNK UNK, BIW
     Route: 065
     Dates: start: 20230309
  25. ACYCLOVIR [Concomitant]
     Active Substance: ACYCLOVIR
     Indication: Antiviral prophylaxis
     Dosage: UNK UNK, QCY
     Route: 065
     Dates: start: 20230223
  26. SULFAMETHOXAZOLE\TRIMETHOPRIM [Concomitant]
     Active Substance: SULFAMETHOXAZOLE\TRIMETHOPRIM
     Indication: Antibiotic prophylaxis
     Dosage: UNK UNK, QCY, CYCLICAL
     Route: 065
     Dates: start: 20230223
  27. LEVOTHYROXINE SODIUM [Concomitant]
     Active Substance: LEVOTHYROXINE SODIUM
     Indication: Hyperthyroidism
     Dosage: UNK
     Route: 065
     Dates: start: 20210917
  28. CHOLECALCIFEROL [Concomitant]
     Active Substance: CHOLECALCIFEROL
     Indication: Vitamin D deficiency
     Dosage: UNK
     Route: 065
     Dates: start: 20230109
  29. RAMIPRIL [Concomitant]
     Active Substance: RAMIPRIL
     Indication: Hypertension
     Dosage: UNK
     Route: 065
     Dates: start: 20230920
  30. TAMSULOSIN [Concomitant]
     Active Substance: TAMSULOSIN
     Indication: Benign prostatic hyperplasia
     Dosage: UNK
     Route: 065

REACTIONS (2)
  - Dyspnoea [Recovered/Resolved]
  - Cardiac failure [Recovered/Resolved]

NARRATIVE: CASE EVENT DATE: 20230920
